FAERS Safety Report 9315690 (Version 1)
Quarter: 2013Q2

REPORT INFORMATION
  Report Type: Spontaneous
  Country: US (occurrence: US)
  Receive Date: 20130529
  Receipt Date: 20130529
  Transmission Date: 20140414
  Serious: Yes (Other)
  Sender: FDA-Public Use
  Company Number: US-ELI_LILLY_AND_COMPANY-US201305006247

PATIENT
  Sex: Male

DRUGS (4)
  1. HUMALOG 25% LISPRO, 75% NPL [Suspect]
     Indication: TYPE 2 DIABETES MELLITUS
     Dosage: 13 U, BID
     Dates: start: 2011
  2. DIGOXIN [Concomitant]
  3. SIMVASTATIN [Concomitant]
  4. WARFARIN [Concomitant]

REACTIONS (2)
  - Chest pain [Unknown]
  - Local swelling [Not Recovered/Not Resolved]
